FAERS Safety Report 4607777-0 (Version None)
Quarter: 2005Q1

REPORT INFORMATION
  Report Type: 
  Country: None (occurrence: None)
  Receive Date: 20050309
  Receipt Date: 20050224
  Transmission Date: 20050727
  Serious: Yes (Hospitalization, Other)
  Sender: FDA-Public Use
  Company Number: 2004076305

PATIENT
  Age: 58 Year
  Sex: Female

DRUGS (3)
  1. ATARAX [Suspect]
     Indication: INSOMNIA
     Dosage: SEE IMAGE
     Route: 048
     Dates: end: 20040830
  2. ATARAX [Suspect]
     Indication: INSOMNIA
     Dosage: SEE IMAGE
     Route: 048
     Dates: start: 20040831, end: 20040903
  3. BROMAZEPAM (BROMAZEPAM) [Suspect]
     Indication: INSOMNIA
     Dosage: 0.5 DOSAGE FORM (1 D), ORAL
     Route: 048
     Dates: end: 20040830

REACTIONS (17)
  - ANAPHYLACTIC SHOCK [None]
  - BLOOD PRESSURE SYSTOLIC DECREASED [None]
  - CHOLECYSTECTOMY [None]
  - DERMATITIS EXFOLIATIVE [None]
  - DRY SKIN [None]
  - HEART RATE INCREASED [None]
  - ILEOSTOMY [None]
  - INFECTION [None]
  - INFLAMMATION [None]
  - LEUKOCYTOSIS [None]
  - PRURITUS [None]
  - PYELOCALIECTASIS [None]
  - PYREXIA [None]
  - RASH ERYTHEMATOUS [None]
  - RASH MACULO-PAPULAR [None]
  - RENAL FAILURE [None]
  - SIGMOIDECTOMY [None]
